FAERS Safety Report 23246626 (Version 2)
Quarter: 2024Q3

REPORT INFORMATION
  Report Type: Report from Study
  Country: CA (occurrence: CA)
  Receive Date: 20231130
  Receipt Date: 20240723
  Transmission Date: 20241016
  Serious: Yes (Other)
  Sender: SAMSUNG BIOEPIS
  Company Number: CA-SAMSUNG BIOEPIS-SB-2023-31482

PATIENT
  Age: 28 Year
  Sex: Male
  Weight: 86.1 kg

DRUGS (2)
  1. RENFLEXIS [Suspect]
     Active Substance: INFLIXIMAB-ABDA
     Indication: Juvenile idiopathic arthritis
     Dosage: 258.3
     Route: 042
     Dates: start: 20230621, end: 20240124
  2. RENFLEXIS [Suspect]
     Active Substance: INFLIXIMAB-ABDA
     Route: 042
     Dates: start: 20240306

REACTIONS (4)
  - Ear infection [Unknown]
  - Ulcer [Unknown]
  - Streptococcal infection [Unknown]
  - Product use in unapproved indication [Unknown]
